FAERS Safety Report 4935294-7 (Version None)
Quarter: 2006Q1

REPORT INFORMATION
  Report Type: 
  Country: None (occurrence: None)
  Receive Date: 20060302
  Receipt Date: 20060210
  Transmission Date: 20060701
  Serious: Yes (Death)
  Sender: FDA-Public Use
  Company Number: USA0509108660

PATIENT
  Age: 48 Year
  Sex: Female
  Weight: 68 kg

DRUGS (7)
  1. CYMBALTA [Suspect]
     Indication: MAJOR DEPRESSION
     Dosage: 80 MG, DAILY (1/D)
  2. ENDOCET [Concomitant]
  3. MORPHINE [Concomitant]
  4. KLONOPIN [Concomitant]
  5. ESZOPICLONE [Concomitant]
  6. AMITRIPYTLINE [Concomitant]
  7. FENTANYL [Concomitant]

REACTIONS (1)
  - HYPERTENSIVE CARDIOMYOPATHY [None]
